FAERS Safety Report 9326307 (Version 1)
Quarter: 2013Q2

REPORT INFORMATION
  Report Type: Spontaneous
  Country: TH (occurrence: None)
  Receive Date: 20130530
  Receipt Date: 20130530
  Transmission Date: 20140414
  Serious: Yes (Other)
  Sender: FDA-Public Use
  Company Number: 2013P1006346

PATIENT
  Age: 62 Year
  Sex: Male

DRUGS (6)
  1. RIFAMPIN [Suspect]
     Indication: TUBERCULOSIS
  2. ISONIAZID [Suspect]
     Indication: TUBERCULOSIS
  3. ETHAMBUTOL [Concomitant]
  4. AMLODIPINE [Concomitant]
  5. METFORMIN [Concomitant]
  6. GLIPIZIDE [Concomitant]

REACTIONS (4)
  - Rash maculo-papular [None]
  - Generalised erythema [None]
  - Post inflammatory pigmentation change [None]
  - Vasculitis [None]
